FAERS Safety Report 6047203-0 (Version None)
Quarter: 2009Q1

REPORT INFORMATION
  Report Type: 
  Country: None (occurrence: None)
  Receive Date: 20090122
  Receipt Date: 20090115
  Transmission Date: 20090719
  Serious: Yes (Other)
  Sender: FDA-Public Use
  Company Number: CA-ASTRAZENECA-2009UW01487

PATIENT
  Age: 24 Year
  Sex: Male
  Weight: 94.4 kg

DRUGS (3)
  1. NEXIUM [Suspect]
     Route: 048
  2. ALLOPURINOL [Concomitant]
  3. NOVO-DOMPERIDONE [Concomitant]

REACTIONS (2)
  - CHEST DISCOMFORT [None]
  - CHEST PAIN [None]
